FAERS Safety Report 10422425 (Version 3)
Quarter: 2014Q3

REPORT INFORMATION
  Report Type: Spontaneous
  Country: HR (occurrence: HR)
  Receive Date: 20140901
  Receipt Date: 20140923
  Transmission Date: 20150326
  Serious: Yes (Other)
  Sender: FDA-Public Use
  Company Number: HR-JNJFOC-20140826263

PATIENT
  Age: 21 Year
  Sex: Female

DRUGS (2)
  1. REMICADE [Suspect]
     Active Substance: INFLIXIMAB
     Indication: COLITIS ULCERATIVE
     Route: 042
     Dates: start: 20120718
  2. SALOFALK [Concomitant]
     Active Substance: MESALAMINE
     Indication: COLITIS ULCERATIVE
     Dosage: 4 TIMES 2
     Route: 065

REACTIONS (6)
  - Collagen disorder [Unknown]
  - Double stranded DNA antibody [Unknown]
  - Pancytopenia [Unknown]
  - Antinuclear antibody increased [Unknown]
  - Spondylitis [Unknown]
  - Arthritis [Unknown]

NARRATIVE: CASE EVENT DATE: 201402
